FAERS Safety Report 14764751 (Version 1)
Quarter: 2018Q2

REPORT INFORMATION
  Report Type: Spontaneous
  Country: US (occurrence: US)
  Receive Date: 20180416
  Receipt Date: 20180416
  Transmission Date: 20180711
  Serious: No
  Sender: FDA-Public Use
  Company Number: US-LPDUSPRD-20171593

PATIENT
  Sex: Female

DRUGS (1)
  1. DEXFERRUM [Suspect]
     Active Substance: IRON DEXTRAN
     Dosage: UNKNOWN
     Route: 042

REACTIONS (4)
  - Erythema [Unknown]
  - Hypertension [Unknown]
  - Presyncope [Unknown]
  - Chest pain [Unknown]
